FAERS Safety Report 8761681 (Version 3)
Quarter: 2014Q1

REPORT INFORMATION
  Report Type: Spontaneous
  Country: US (occurrence: None)
  Receive Date: 20120822
  Receipt Date: 20130923
  Transmission Date: 20141002
  Serious: Yes (Hospitalization)
  Sender: FDA-Public Use
  Company Number: 2012ST000622

PATIENT
  Age: 52 Year
  Sex: Male
  Weight: 66.2 kg

DRUGS (18)
  1. MATULANE [Suspect]
     Indication: HODGKIN^S DISEASE
     Route: 048
     Dates: start: 2012, end: 2012
  2. CHLORAMBUCIL [Suspect]
     Indication: HODGKIN^S DISEASE
     Route: 048
     Dates: start: 20120426, end: 20120726
  3. VINBLASTINE [Suspect]
     Indication: HODGKIN^S DISEASE
     Route: 042
     Dates: start: 2012, end: 2012
  4. PREDNISOLONE [Suspect]
     Indication: HODGKIN^S DISEASE
     Route: 048
     Dates: start: 2012, end: 2012
  5. NEULASTA [Concomitant]
  6. VICODIN [Concomitant]
  7. ACICLOVIR [Concomitant]
  8. AMLODIPINE [Concomitant]
  9. FUROSEMIDE [Concomitant]
  10. ROCALTROL [Concomitant]
  11. HYDRALAZINE [Concomitant]
  12. FOLVITE [Concomitant]
  13. CALCIUM CARBONATE [Concomitant]
  14. ISOSORBIDE MONONITRATE [Concomitant]
  15. PRAVASTATIN [Concomitant]
  16. PANTOPRAZOLE [Concomitant]
  17. NEPHROVITE [Concomitant]
  18. DOCUSATE SODIUM [Concomitant]

REACTIONS (3)
  - Urinary tract infection [None]
  - Neutropenia [None]
  - Haemoglobin decreased [None]
